FAERS Safety Report 15627451 (Version 1)
Quarter: 2018Q4

REPORT INFORMATION
  Report Type: Spontaneous
  Country: US (occurrence: US)
  Receive Date: 20181116
  Receipt Date: 20181116
  Transmission Date: 20190205
  Serious: Yes (Death)
  Sender: FDA-Public Use
  Company Number: None

PATIENT
  Age: 61 Year
  Sex: Female

DRUGS (22)
  1. AMLODIPINE [Concomitant]
     Active Substance: AMLODIPINE BESYLATE
  2. ALPRAZOLAM. [Concomitant]
     Active Substance: ALPRAZOLAM
  3. MEPROBAMATE. [Concomitant]
     Active Substance: MEPROBAMATE
  4. MORPHINE SULF [Concomitant]
     Active Substance: MORPHINE SULFATE
  5. PROCHLORPER [Concomitant]
  6. CARAFATE [Concomitant]
     Active Substance: SUCRALFATE
  7. NITROFURANTIN [Concomitant]
     Active Substance: NITROFURANTOIN
  8. OLM MED/HCTZ [Concomitant]
  9. ONDANSETRON [Concomitant]
     Active Substance: ONDANSETRON
  10. TIZANIDINE. [Concomitant]
     Active Substance: TIZANIDINE
  11. LORAZEPAM. [Concomitant]
     Active Substance: LORAZEPAM
  12. FERROUS SULFATE. [Concomitant]
     Active Substance: FERROUS SULFATE
  13. LIDO/PRILOCIN [Concomitant]
  14. OXYCODONE AND ACETAMINOPHEN [Concomitant]
     Active Substance: ACETAMINOPHEN\OXYCODONE HYDROCHLORIDE
  15. PANTOPRAZOLE [Concomitant]
     Active Substance: PANTOPRAZOLE
  16. MEKINIST [Suspect]
     Active Substance: TRAMETINIB DIMETHYL SULFOXIDE
     Indication: LUNG CARCINOMA CELL TYPE UNSPECIFIED STAGE 0
     Route: 048
     Dates: start: 20180202
  17. XARELTO [Concomitant]
     Active Substance: RIVAROXABAN
  18. DEXAMETHASONE. [Concomitant]
     Active Substance: DEXAMETHASONE
  19. AMOXICILLIN. [Concomitant]
     Active Substance: AMOXICILLIN
  20. TAFINLAR [Suspect]
     Active Substance: DABRAFENIB MESYLATE
     Indication: LUNG CARCINOMA CELL TYPE UNSPECIFIED STAGE 0
     Route: 048
     Dates: start: 20180401
  21. POLYETH GLYC [Concomitant]
     Active Substance: POLYETHYLENE GLYCOLS
  22. CYANOCOBALAM [Concomitant]
     Active Substance: CYANOCOBALAMIN

REACTIONS (1)
  - Death [None]

NARRATIVE: CASE EVENT DATE: 20181113
